FAERS Safety Report 5477920-2 (Version None)
Quarter: 2007Q4

REPORT INFORMATION
  Report Type: 
  Country: None (occurrence: None)
  Receive Date: 20071005
  Receipt Date: 20071001
  Transmission Date: 20080405
  Serious: Yes (Death, Other)
  Sender: FDA-Public Use
  Company Number: PHBS2007NL16353

PATIENT
  Age: 36 Year
  Sex: Male

DRUGS (3)
  1. MYCOPHENOLATE MOFETIL [Suspect]
     Indication: LIVER TRANSPLANT
     Route: 065
     Dates: start: 20021029
  2. PREDNISONE [Suspect]
     Indication: LIVER TRANSPLANT
     Route: 065
     Dates: start: 20021029
  3. CICLOSPORIN [Suspect]
     Indication: LIVER TRANSPLANT
     Route: 065
     Dates: start: 20021029

REACTIONS (11)
  - ACUTE RESPIRATORY FAILURE [None]
  - ASCITES [None]
  - CARDIAC ARREST [None]
  - CYTOMEGALOVIRUS INFECTION [None]
  - LOCALISED OEDEMA [None]
  - PANCYTOPENIA [None]
  - PERITONITIS [None]
  - PYREXIA [None]
  - RENAL FAILURE [None]
  - SPLENOMEGALY [None]
  - TOXOPLASMOSIS [None]
